FAERS Safety Report 24891584 (Version 1)
Quarter: 2025Q1

REPORT INFORMATION
  Report Type: Spontaneous
  Country: ES (occurrence: ES)
  Receive Date: 20250127
  Receipt Date: 20250127
  Transmission Date: 20250409
  Serious: Yes (Hospitalization)
  Sender: PFIZER
  Company Number: None

PATIENT
  Age: 89 Year
  Sex: Male

DRUGS (5)
  1. AZITHROMYCIN [Suspect]
     Active Substance: AZITHROMYCIN
     Indication: Respiratory tract infection
     Dosage: 500 MG, 1X/DAY
     Route: 048
     Dates: start: 20241215, end: 20241217
  2. SINTROM [Suspect]
     Active Substance: ACENOCOUMAROL
     Indication: Atrial fibrillation
     Dosage: 5 MG, WEEKLY
     Route: 048
     Dates: start: 20170313, end: 20241218
  3. SINTROM [Suspect]
     Active Substance: ACENOCOUMAROL
     Dosage: 0.5 MG, 1X/DAY
     Route: 048
     Dates: start: 20241219, end: 20241229
  4. AMOXICILLIN\CLAVULANIC ACID [Suspect]
     Active Substance: AMOXICILLIN\CLAVULANIC ACID
     Indication: Respiratory tract infection
     Dosage: 1 DF, EVERY 12 HOURS
     Route: 048
     Dates: start: 20241217, end: 20241229
  5. PREDNISONE [Concomitant]
     Active Substance: PREDNISONE
     Indication: Respiratory tract infection
     Dosage: 30 MG, 1X/DAY
     Route: 048
     Dates: start: 20241226, end: 20241229

REACTIONS (3)
  - Abdominal wall haematoma [Recovering/Resolving]
  - Ascites [Unknown]
  - Pleural effusion [Unknown]

NARRATIVE: CASE EVENT DATE: 20241227
